FAERS Safety Report 7981594-6 (Version None)
Quarter: 2011Q4

REPORT INFORMATION
  Report Type: 
  Country: None (occurrence: None)
  Receive Date: 20111215
  Receipt Date: 20111207
  Transmission Date: 20120403
  Serious: Yes (Hospitalization)
  Sender: FDA-Public Use
  Company Number: DE-EISAI INC-E2020-10099-SPO-DE

PATIENT
  Age: 53 Year
  Sex: Female

DRUGS (1)
  1. ARICEPT [Suspect]
     Dosage: UNKNOWN
     Route: 048

REACTIONS (3)
  - CHOLINERGIC SYNDROME [None]
  - COMA [None]
  - BRADYCARDIA [None]
